FAERS Safety Report 17416569 (Version 5)
Quarter: 2020Q2

REPORT INFORMATION
  Report Type: Report from Study
  Country: BR (occurrence: BR)
  Receive Date: 20200210
  Receipt Date: 20200507
  Transmission Date: 20200713
  Serious: Yes (Hospitalization)
  Sender: FDA-Public Use
  Company Number: BR-JNJFOC-20200200894

PATIENT
  Age: 8 Year
  Sex: Female
  Weight: 20.4 kg

DRUGS (9)
  1. AZATHIOPRINE. [Concomitant]
     Active Substance: AZATHIOPRINE
     Route: 048
     Dates: start: 20190913
  2. NORIPURUM [Concomitant]
     Active Substance: IRON POLYMALTOSE
     Dosage: FREQ: ONCE
     Route: 042
     Dates: start: 20200115, end: 20200130
  3. MIDAZOLAM. [Concomitant]
     Active Substance: MIDAZOLAM
  4. VITAMIN D                          /00107901/ [Concomitant]
     Active Substance: ERGOCALCIFEROL
     Route: 048
     Dates: start: 20200120
  5. GOLIMUMAB [Suspect]
     Active Substance: GOLIMUMAB
     Indication: COLITIS ULCERATIVE
     Dosage: FREQUENCY: ONCE; MOST RECENT DOSE: 22-JAN-2020
     Route: 058
     Dates: start: 20191016
  6. GOLIMUMAB [Suspect]
     Active Substance: GOLIMUMAB
  7. GANCICLOVIR. [Concomitant]
     Active Substance: GANCICLOVIR
  8. MESALAZINE [Concomitant]
     Active Substance: MESALAMINE
     Dosage: 500 MG
     Route: 048
     Dates: start: 20191226
  9. MORPHIN [Concomitant]
     Active Substance: MORPHINE

REACTIONS (1)
  - Cytomegalovirus colitis [Recovered/Resolved]

NARRATIVE: CASE EVENT DATE: 20200129
